FAERS Safety Report 8871601 (Version 1)
Quarter: 2012Q4

REPORT INFORMATION
  Report Type: Spontaneous
  Country: US (occurrence: None)
  Receive Date: 20121024
  Receipt Date: 20121024
  Transmission Date: 20130627
  Serious: Yes (Hospitalization)
  Sender: FDA-Public Use
  Company Number: 2012EXPUS00051

PATIENT
  Age: 37 Year
  Sex: Female

DRUGS (1)
  1. EXPAREL [Suspect]
     Indication: POSTOPERATIVE ANALGESIA
     Dates: start: 20121009, end: 20121009

REACTIONS (4)
  - Rash generalised [None]
  - Pruritus generalised [None]
  - Rash pruritic [None]
  - Rash erythematous [None]
